FAERS Safety Report 13974075 (Version 1)
Quarter: 2017Q3

REPORT INFORMATION
  Report Type: Spontaneous
  Country: US (occurrence: US)
  Receive Date: 20170915
  Receipt Date: 20170915
  Transmission Date: 20171128
  Serious: No
  Sender: FDA-Public Use
  Company Number: US-BAUSCH-BL-2017-000835

PATIENT
  Age: 83 Year
  Sex: Female

DRUGS (1)
  1. FLUOROURACIL 5% [Suspect]
     Active Substance: FLUOROURACIL
     Indication: SKIN CANCER
     Dosage: EVERY 2 WEEKS
     Route: 061

REACTIONS (4)
  - Application site erythema [Not Recovered/Not Resolved]
  - Rash pruritic [Recovering/Resolving]
  - Reaction to excipient [Not Recovered/Not Resolved]
  - Unevaluable event [Not Recovered/Not Resolved]

NARRATIVE: CASE EVENT DATE: 201612
